FAERS Safety Report 5219675-2 (Version None)
Quarter: 2007Q1

REPORT INFORMATION
  Report Type: 
  Country: None (occurrence: None)
  Receive Date: 20061121
  Receipt Date: 20060902
  Transmission Date: 20070707
  Serious: No
  Sender: FDA-Public Use
  Company Number: TPA2006A01513

PATIENT
  Sex: Female

DRUGS (1)
  1. ROZEREM [Suspect]
     Dosage: 8 MG, ONCE, PER ORAL
     Route: 048

REACTIONS (5)
  - HEADACHE [None]
  - MIDDLE INSOMNIA [None]
  - NECK PAIN [None]
  - RASH [None]
  - STOMACH DISCOMFORT [None]
